FAERS Safety Report 11340947 (Version 1)
Quarter: 2015Q3

REPORT INFORMATION
  Report Type: Spontaneous
  Country: US (occurrence: US)
  Receive Date: 20150805
  Receipt Date: 20150805
  Transmission Date: 20151125
  Serious: No
  Sender: FDA-Public Use
  Company Number: US-JNJFOC-20150413308

PATIENT
  Sex: Female

DRUGS (2)
  1. NIZORAL [Suspect]
     Active Substance: KETOCONAZOLE
     Route: 065
  2. NIZORAL [Suspect]
     Active Substance: KETOCONAZOLE
     Indication: DANDRUFF
     Route: 065
     Dates: start: 201504, end: 201505

REACTIONS (4)
  - Drug ineffective [Recovering/Resolving]
  - Dandruff [Recovering/Resolving]
  - Inappropriate schedule of drug administration [Unknown]
  - Dry skin [Recovering/Resolving]
